FAERS Safety Report 9972158 (Version 1)
Quarter: 2014Q1

REPORT INFORMATION
  Report Type: Spontaneous
  Country: US (occurrence: None)
  Receive Date: 20140305
  Receipt Date: 20140305
  Transmission Date: 20141002
  Serious: No
  Sender: FDA-Public Use
  Company Number: None

PATIENT
  Age: 5 Year
  Sex: Female
  Weight: 23.59 kg

DRUGS (1)
  1. TUMS [Suspect]
     Indication: ABDOMINAL DISCOMFORT
     Dates: start: 20140303, end: 20140304

REACTIONS (2)
  - Urticaria [None]
  - Chest discomfort [None]
